FAERS Safety Report 7984866-4 (Version None)
Quarter: 2011Q4

REPORT INFORMATION
  Report Type: 
  Country: None (occurrence: None)
  Receive Date: 20111214
  Receipt Date: 20111202
  Transmission Date: 20120403
  Serious: Yes (Life-Threatening, Other)
  Sender: FDA-Public Use
  Company Number: 1084995

PATIENT
  Age: 56 Year
  Sex: Female
  Weight: 82.5 kg

DRUGS (13)
  1. HYDROCORTISONE [Suspect]
     Indication: PRODUCT USED FOR UNKNOWN INDICATION
     Dosage: 100 MG MILLIGRAM(S)
     Dates: start: 20111012, end: 20111012
  2. ACETAMINOPHEN [Concomitant]
  3. OXALIPLATIN [Suspect]
     Indication: CHEMOTHERAPY
     Dosage: 220 MG MILLIGRAM(S), INTRAVENOUS DRIP
     Route: 041
     Dates: start: 20111012, end: 20111012
  4. GRANISETRON [Suspect]
     Indication: PRODUCT USED FOR UNKNOWN INDICATION
     Dosage: 2 MG MILLIGRAM(S), ORAL
     Route: 048
     Dates: start: 20110921
  5. GRANISETRON [Suspect]
     Indication: PRODUCT USED FOR UNKNOWN INDICATION
     Dosage: 2 MG MILLIGRAM(S), ORAL
     Route: 048
     Dates: start: 20111012, end: 20111012
  6. OXALIPLATIN [Suspect]
     Indication: CHEMOTHERAPY
     Dosage: INTRAVENOUS DRIP
     Route: 041
     Dates: start: 20110921
  7. ROSUVASTATIN [Concomitant]
  8. LOPERAMIDE HCL [Concomitant]
  9. OXALIPLATIN [Suspect]
     Indication: CHEMOTHERAPY
     Dosage: 220 MG MILLIGRAM(S), INTRAVENOUS DRIP
     Route: 041
     Dates: start: 20111012, end: 20111012
  10. CAPECITABINE [Concomitant]
  11. LORATADINE [Suspect]
     Indication: PRODUCT USED FOR UNKNOWN INDICATION
     Dosage: 10 MG MILLIGRAM(S)
     Dates: start: 20111012, end: 20111012
  12. DEXAMETHASONE [Suspect]
     Indication: PRODUCT USED FOR UNKNOWN INDICATION
     Dates: start: 20111012, end: 20111012
  13. METOCLOPRAMIDE [Concomitant]

REACTIONS (7)
  - PARAESTHESIA [None]
  - ELECTROCARDIOGRAM T WAVE ABNORMAL [None]
  - ASTHENOPIA [None]
  - HEADACHE [None]
  - CHEST DISCOMFORT [None]
  - DRUG HYPERSENSITIVITY [None]
  - BLOOD PRESSURE INCREASED [None]
